FAERS Safety Report 8090985-7 (Version None)
Quarter: 2012Q1

REPORT INFORMATION
  Report Type: 
  Country: None (occurrence: None)
  Receive Date: 20120128
  Receipt Date: 20110729
  Transmission Date: 20120608
  Serious: No
  Sender: FDA-Public Use
  Company Number: US-ABBOTT-11P-163-0842988-00

PATIENT
  Age: 62 Year
  Sex: Male

DRUGS (7)
  1. HUMIRA [Suspect]
     Indication: PSORIASIS
     Dates: start: 20110601
  2. DILTIAZEM HCL [Concomitant]
     Indication: BLOOD PRESSURE
     Dosage: PILL
  3. INSULIN [Concomitant]
     Indication: PRODUCT USED FOR UNKNOWN INDICATION
     Dosage: SHOTS, DAILY
  4. LISINOPRIL [Concomitant]
     Indication: BLOOD PRESSURE
  5. MEFORMIN [Concomitant]
     Indication: PRODUCT USED FOR UNKNOWN INDICATION
  6. GLIMEPIRIDE [Concomitant]
     Indication: PRODUCT USED FOR UNKNOWN INDICATION
  7. TAMUSOLIN [Concomitant]
     Indication: PROSTATIC DISORDER

REACTIONS (1)
  - RASH [None]
